FAERS Safety Report 18458740 (Version 1)
Quarter: 2020Q4

REPORT INFORMATION
  Report Type: Report from Study
  Country: US (occurrence: US)
  Receive Date: 20201103
  Receipt Date: 20201103
  Transmission Date: 20210114
  Serious: Yes (Hospitalization)
  Sender: FDA-Public Use
  Company Number: US-JNJFOC-20201037715

PATIENT
  Age: 46 Year
  Sex: Female
  Weight: 54.48 kg

DRUGS (2)
  1. EPOPROSTENOL SODIUM. [Suspect]
     Active Substance: EPOPROSTENOL SODIUM
     Indication: PULMONARY HYPERTENSION
     Route: 042
  2. ADCIRCA [Concomitant]
     Active Substance: TADALAFIL

REACTIONS (1)
  - Fluid retention [Unknown]

NARRATIVE: CASE EVENT DATE: 20201005
